FAERS Safety Report 12668920 (Version 1)
Quarter: 2016Q3

REPORT INFORMATION
  Report Type: Spontaneous
  Country: CH (occurrence: CH)
  Receive Date: 20160819
  Receipt Date: 20160819
  Transmission Date: 20161109
  Serious: Yes (Hospitalization, Other)
  Sender: FDA-Public Use
  Company Number: CH-009507513-1608CHE005591

PATIENT
  Age: 80 Year
  Sex: Male

DRUGS (1)
  1. REMERON [Suspect]
     Active Substance: MIRTAZAPINE
     Indication: INSOMNIA
     Dosage: 1 DF, QD
     Route: 048

REACTIONS (11)
  - Constipation [Unknown]
  - Dizziness [Unknown]
  - Insomnia [Unknown]
  - Product use issue [Unknown]
  - Muscle spasms [Unknown]
  - Tremor [Unknown]
  - Weight increased [Unknown]
  - Parkinson^s disease [Unknown]
  - Headache [Unknown]
  - Hallucination [Unknown]
  - Restless legs syndrome [Unknown]
